FAERS Safety Report 8388493-9 (Version None)
Quarter: 2012Q2

REPORT INFORMATION
  Report Type: 
  Country: None (occurrence: None)
  Receive Date: 20120525
  Receipt Date: 20120523
  Transmission Date: 20120825
  Serious: Yes (Death, Hospitalization, Other)
  Sender: FDA-Public Use
  Company Number: RO-ROCHE-1071458

PATIENT
  Sex: Female

DRUGS (1)
  1. XELODA [Suspect]
     Indication: BREAST CANCER METASTATIC
     Dates: start: 20120418, end: 20120501

REACTIONS (4)
  - GASTROINTESTINAL TOXICITY [None]
  - APLASIA [None]
  - ATRIAL FIBRILLATION [None]
  - THROMBOCYTOPENIA [None]
